FAERS Safety Report 17070744 (Version 4)
Quarter: 2020Q1

REPORT INFORMATION
  Report Type: Spontaneous
  Country: NO (occurrence: NO)
  Receive Date: 20191125
  Receipt Date: 20200226
  Transmission Date: 20200409
  Serious: Yes (Hospitalization, Other)
  Sender: FDA-Public Use
  Company Number: NO-B.I. PHARMACEUTICALS,INC./RIDGEFIELD-2019-BI-115481

PATIENT
  Age: 77 Year
  Sex: Male

DRUGS (1)
  1. PRADAXA [Suspect]
     Active Substance: DABIGATRAN ETEXILATE MESYLATE
     Indication: ATRIAL FIBRILLATION
     Route: 065
     Dates: start: 201811

REACTIONS (8)
  - Fall [Recovered/Resolved]
  - Subcutaneous emphysema [Unknown]
  - Rib fracture [Unknown]
  - Pneumonia [Recovered/Resolved]
  - Thrombocytopenia [Unknown]
  - Pneumothorax [Unknown]
  - Haemothorax [Recovered/Resolved]
  - Varices oesophageal [Unknown]

NARRATIVE: CASE EVENT DATE: 201911
